FAERS Safety Report 15582994 (Version 1)
Quarter: 2018Q4

REPORT INFORMATION
  Report Type: Spontaneous
  Country: ES (occurrence: ES)
  Receive Date: 20181103
  Receipt Date: 20181103
  Transmission Date: 20190205
  Serious: Yes (Life-Threatening, Hospitalization, Other)
  Sender: FDA-Public Use
  Company Number: ES-ACCORD-091378

PATIENT
  Age: 62 Year
  Sex: Female

DRUGS (3)
  1. CICLOSPORIN [Interacting]
     Active Substance: CYCLOSPORINE
     Indication: DERMATOMYOSITIS
     Route: 048
     Dates: start: 20160604, end: 20180122
  2. PREDNISONE. [Interacting]
     Active Substance: PREDNISONE
     Indication: DERMATOMYOSITIS
     Route: 048
     Dates: start: 20160604, end: 20180115
  3. METHOTREXATE. [Suspect]
     Active Substance: METHOTREXATE
     Indication: DERMATOMYOSITIS
     Route: 058
     Dates: start: 201710, end: 20180115

REACTIONS (3)
  - Pneumocystis jirovecii pneumonia [Recovered/Resolved]
  - Off label use [Unknown]
  - Drug interaction [Unknown]

NARRATIVE: CASE EVENT DATE: 20171223
